FAERS Safety Report 5759323-6 (Version None)
Quarter: 2008Q2

REPORT INFORMATION
  Report Type: 
  Country: None (occurrence: None)
  Receive Date: 20080530
  Receipt Date: 20080520
  Transmission Date: 20081010
  Serious: Yes (Death, Hospitalization, Other)
  Sender: FDA-Public Use
  Company Number: GXKR2008FI04616

PATIENT
  Sex: 0

DRUGS (1)
  1. PROCAINAMIDE [Suspect]

REACTIONS (2)
  - BRUGADA SYNDROME [None]
  - SUDDEN CARDIAC DEATH [None]
